FAERS Safety Report 19008483 (Version 1)
Quarter: 2021Q1

REPORT INFORMATION
  Report Type: Spontaneous
  Country: US (occurrence: US)
  Receive Date: 20210315
  Receipt Date: 20210315
  Transmission Date: 20210420
  Serious: Yes (Hospitalization, Other)
  Sender: FDA-Public Use
  Company Number: US-INSMED, INC.-2021-08007-US

PATIENT

DRUGS (1)
  1. ARIKAYCE [Suspect]
     Active Substance: AMIKACIN
     Indication: PRODUCT USED FOR UNKNOWN INDICATION
     Dosage: 590 MILLIGRAM
     Route: 055
     Dates: start: 202102, end: 2021

REACTIONS (2)
  - Hospitalisation [Unknown]
  - Hypersensitivity pneumonitis [Unknown]

NARRATIVE: CASE EVENT DATE: 2021
